FAERS Safety Report 16151796 (Version 2)
Quarter: 2019Q2

REPORT INFORMATION
  Report Type: Spontaneous
  Country: CA (occurrence: CA)
  Receive Date: 20190403
  Receipt Date: 20190502
  Transmission Date: 20190711
  Serious: Yes (Life-Threatening, Other)
  Sender: FDA-Public Use
  Company Number: CA-009507513-1903CAN012799

PATIENT
  Age: 8 Year
  Sex: Female
  Weight: 22 kg

DRUGS (2)
  1. FLOVENT [Suspect]
     Active Substance: FLUTICASONE PROPIONATE
     Indication: ASTHMA PROPHYLAXIS
     Dosage: UNK
  2. ZENHALE [Suspect]
     Active Substance: FORMOTEROL FUMARATE\MOMETASONE FUROATE
     Indication: ASTHMA PROPHYLAXIS
     Dosage: 1 DOSAGE FORM, 2 TIMES EVERY 1 DAY (AEROSOL METERED DOSE)

REACTIONS (3)
  - Cortisol decreased [Recovering/Resolving]
  - Adrenal insufficiency [Recovering/Resolving]
  - Growth retardation [Recovering/Resolving]
